FAERS Safety Report 14423161 (Version 1)
Quarter: 2018Q1

REPORT INFORMATION
  Report Type: Spontaneous
  Country: US (occurrence: US)
  Receive Date: 20180123
  Receipt Date: 20180123
  Transmission Date: 20180509
  Serious: No
  Sender: FDA-Public Use
  Company Number: US-JNJFOC-20180104845

PATIENT
  Age: 49 Year
  Sex: Female
  Weight: 62.14 kg

DRUGS (2)
  1. PREDNISONE. [Suspect]
     Active Substance: PREDNISONE
     Indication: COLITIS ULCERATIVE
     Route: 048
     Dates: start: 201710
  2. REMICADE [Suspect]
     Active Substance: INFLIXIMAB
     Indication: COLITIS ULCERATIVE
     Route: 042
     Dates: start: 20171020

REACTIONS (2)
  - Weight increased [Not Recovered/Not Resolved]
  - Inadequate diet [Not Recovered/Not Resolved]

NARRATIVE: CASE EVENT DATE: 201710
